FAERS Safety Report 23873090 (Version 1)
Quarter: 2024Q2

REPORT INFORMATION
  Report Type: Spontaneous
  Country: ZA (occurrence: ZA)
  Receive Date: 20240520
  Receipt Date: 20240520
  Transmission Date: 20240716
  Serious: Yes (Other)
  Sender: FDA-Public Use
  Company Number: ZA-BAYER-2024A068250

PATIENT
  Age: 34 Year
  Sex: Female

DRUGS (1)
  1. DIENOGEST\ESTRADIOL VALERATE [Suspect]
     Active Substance: DIENOGEST\ESTRADIOL VALERATE
     Indication: Contraception
     Dosage: DIRECTIONS  ONE TABLET  DAILY, ONCE
     Route: 048

REACTIONS (1)
  - Female sterilisation [None]

NARRATIVE: CASE EVENT DATE: 20240501
